FAERS Safety Report 25509229 (Version 7)
Quarter: 2025Q3

REPORT INFORMATION
  Report Type: Report from Study
  Country: US (occurrence: US)
  Receive Date: 20250703
  Receipt Date: 20250805
  Transmission Date: 20251020
  Serious: Yes (Death, Hospitalization, Other)
  Sender: ACADIA PHARMACEUTICALS
  Company Number: US-ACADIA PHARMACEUTICALS INC.-ACA-2025-PIM-007825

PATIENT
  Age: 79 Year
  Sex: Male

DRUGS (2)
  1. NUPLAZID [Suspect]
     Active Substance: PIMAVANSERIN TARTRATE
     Indication: Parkinson^s disease psychosis
     Dosage: 34 MILLIGRAM, QD
     Route: 048
     Dates: end: 20250707
  2. NUPLAZID [Suspect]
     Active Substance: PIMAVANSERIN TARTRATE
     Dosage: 34 MILLIGRAM, QD
     Route: 048
     Dates: end: 20250724

REACTIONS (10)
  - Pneumonia [Fatal]
  - Cardiac failure [Fatal]
  - Decubitus ulcer [Unknown]
  - Peripheral swelling [Unknown]
  - Hallucination [Unknown]
  - Dementia with Lewy bodies [Unknown]
  - Cellulitis [Unknown]
  - Fall [Unknown]
  - Somnolence [Unknown]
  - Overdose [Unknown]

NARRATIVE: CASE EVENT DATE: 20250724
